FAERS Safety Report 5192452-7 (Version None)
Quarter: 2006Q4

REPORT INFORMATION
  Report Type: 
  Country: None (occurrence: None)
  Receive Date: 20061227
  Receipt Date: 20061220
  Transmission Date: 20070319
  Serious: Yes (Hospitalization)
  Sender: FDA-Public Use
  Company Number: DE-ABBOTT-06P-062-0353691-00

PATIENT
  Sex: Male

DRUGS (1)
  1. TARKA [Suspect]
     Indication: DRUG USE FOR UNKNOWN INDICATION
     Dosage: 2MG/180MG TABLETS
     Route: 048
     Dates: start: 20061219, end: 20061219

REACTIONS (2)
  - FATIGUE [None]
  - SUICIDE ATTEMPT [None]
